FAERS Safety Report 6149045-4 (Version None)
Quarter: 2009Q2

REPORT INFORMATION
  Report Type: 
  Country: None (occurrence: None)
  Receive Date: 20090409
  Receipt Date: 20090401
  Transmission Date: 20091009
  Serious: Yes (Other)
  Sender: FDA-Public Use
  Company Number: BE-PFIZER INC-2009192903

PATIENT

DRUGS (1)
  1. EXEMESTANE [Suspect]

REACTIONS (2)
  - ROAD TRAFFIC ACCIDENT [None]
  - VERTIGO [None]
